FAERS Safety Report 12521383 (Version 1)
Quarter: 2016Q3

REPORT INFORMATION
  Report Type: Spontaneous
  Country: US (occurrence: US)
  Receive Date: 20160701
  Receipt Date: 20160701
  Transmission Date: 20161109
  Serious: No
  Sender: FDA-Public Use
  Company Number: US-PFIZER INC-3028191

PATIENT
  Sex: Female

DRUGS (10)
  1. HUMIRA [Suspect]
     Active Substance: ADALIMUMAB
  2. CELEBREX [Suspect]
     Active Substance: CELECOXIB
  3. ENBREL [Suspect]
     Active Substance: ETANERCEPT
  4. OTEZLA [Suspect]
     Active Substance: APREMILAST
  5. SIMPONI [Suspect]
     Active Substance: GOLIMUMAB
  6. METHOTREXATE SODIUM. [Suspect]
     Active Substance: METHOTREXATE SODIUM
  7. REMICADE [Suspect]
     Active Substance: INFLIXIMAB
  8. CIMZIA [Suspect]
     Active Substance: CERTOLIZUMAB PEGOL
  9. ARTHROTEC [Suspect]
     Active Substance: DICLOFENAC SODIUM\MISOPROSTOL
  10. PREDNISONE. [Suspect]
     Active Substance: PREDNISONE

REACTIONS (2)
  - Musculoskeletal deformity [Unknown]
  - Pain [Unknown]

NARRATIVE: CASE EVENT DATE: 20150701
